FAERS Safety Report 6690090-8 (Version None)
Quarter: 2010Q2

REPORT INFORMATION
  Report Type: 
  Country: None (occurrence: None)
  Receive Date: 20100421
  Receipt Date: 20100414
  Transmission Date: 20101027
  Serious: Yes (Hospitalization)
  Sender: FDA-Public Use
  Company Number: US-RB-002535-10

PATIENT
  Age: 52 Year
  Sex: Female

DRUGS (2)
  1. SUBOXONE [Suspect]
     Route: 060
     Dates: start: 20070101
  2. VANDAZOLE [Concomitant]
     Dosage: DOSING INFORMATION UNKNOWN
     Dates: start: 20090101

REACTIONS (3)
  - CHONDROPATHY [None]
  - GARDNERELLA INFECTION [None]
  - PAIN [None]
